FAERS Safety Report 7798324-3 (Version None)
Quarter: 2011Q4

REPORT INFORMATION
  Report Type: 
  Country: None (occurrence: None)
  Receive Date: 20111005
  Receipt Date: 20110923
  Transmission Date: 20120403
  Serious: Yes (Hospitalization)
  Sender: FDA-Public Use
  Company Number: US-ELI_LILLY_AND_COMPANY-US201108008210

PATIENT
  Sex: Male

DRUGS (5)
  1. HUMULIN N [Suspect]
     Indication: DIABETES MELLITUS
     Dosage: 38 U, EACH MORNING
     Dates: start: 20010101
  2. HUMULIN N [Suspect]
     Dosage: 50 U, EACH EVENING
     Dates: start: 20010101
  3. HUMULIN N [Suspect]
     Dosage: 50 U, EACH EVENING
     Dates: start: 20010101
  4. HUMULIN N [Suspect]
     Dosage: 38 U, EACH MORNING
     Dates: start: 20010101
  5. HUMALOG [Suspect]
     Indication: DIABETES MELLITUS

REACTIONS (2)
  - DEVICE RELATED INFECTION [None]
  - DIABETES MELLITUS INADEQUATE CONTROL [None]
